FAERS Safety Report 8188923-1 (Version None)
Quarter: 2012Q1

REPORT INFORMATION
  Report Type: 
  Country: None (occurrence: None)
  Receive Date: 20120306
  Receipt Date: 20120229
  Transmission Date: 20120608
  Serious: Yes (Death)
  Sender: FDA-Public Use
  Company Number: US-GILEAD-2012-0051663

PATIENT
  Age: 80 Year
  Sex: Female

DRUGS (4)
  1. ADCIRCA [Suspect]
  2. LETAIRIS [Suspect]
     Indication: PRODUCT USED FOR UNKNOWN INDICATION
     Dosage: 10 MG, UNK
     Route: 048
     Dates: start: 20110401
  3. NITROGLYCERIN [Suspect]
  4. TYVASO [Concomitant]

REACTIONS (1)
  - DEATH [None]
